FAERS Safety Report 12940061 (Version 1)
Quarter: 2016Q4

REPORT INFORMATION
  Report Type: Spontaneous
  Country: US (occurrence: US)
  Receive Date: 20161115
  Receipt Date: 20161115
  Transmission Date: 20170207
  Serious: Yes (Other)
  Sender: FDA-Public Use
  Company Number: None

PATIENT
  Age: 78 Year
  Sex: Male
  Weight: 87.75 kg

DRUGS (19)
  1. OMEPRAZOLE. [Concomitant]
     Active Substance: OMEPRAZOLE
  2. PIOGLITAZONE-METFORMIN [Concomitant]
  3. LISINOPRIL. [Concomitant]
     Active Substance: LISINOPRIL
  4. LEVOTHYROXINE. [Concomitant]
     Active Substance: LEVOTHYROXINE
  5. METOPROLOL. [Concomitant]
     Active Substance: METOPROLOL
  6. ALPRAZOLAM. [Concomitant]
     Active Substance: ALPRAZOLAM
  7. ROSUVASTATIN. [Concomitant]
     Active Substance: ROSUVASTATIN
  8. LORATADINE D [Concomitant]
     Active Substance: LORATADINE\PSEUDOEPHEDRINE SULFATE
  9. HYDROCODONE BITARTRATE AND ACETAMINOPHEN [Concomitant]
     Active Substance: ACETAMINOPHEN\HYDROCODONE BITARTRATE
  10. FUROSEMIDE. [Concomitant]
     Active Substance: FUROSEMIDE
  11. FITAMIN D3 [Concomitant]
  12. AMLODIPINE [Concomitant]
     Active Substance: AMLODIPINE BESYLATE
  13. OFEV [Suspect]
     Active Substance: NINTEDANIB
     Indication: IDIOPATHIC PULMONARY FIBROSIS
     Route: 048
     Dates: start: 20160728, end: 20160820
  14. ASA [Concomitant]
     Active Substance: ASPIRIN
  15. AMLODIPINE BESYLATE. [Concomitant]
     Active Substance: AMLODIPINE BESYLATE
  16. FENOFIBRATE. [Concomitant]
     Active Substance: FENOFIBRATE
  17. VENTOLIN HFA [Concomitant]
     Active Substance: ALBUTEROL SULFATE
  18. TAMSULOSIN [Concomitant]
     Active Substance: TAMSULOSIN
  19. LOPERAMIDE [Concomitant]
     Active Substance: LOPERAMIDE

REACTIONS (3)
  - Dysgeusia [None]
  - Weight decreased [None]
  - Hypophagia [None]

NARRATIVE: CASE EVENT DATE: 20160820
